FAERS Safety Report 5318328-X (Version None)
Quarter: 2007Q2

REPORT INFORMATION
  Report Type: 
  Country: None (occurrence: None)
  Receive Date: 20070507
  Receipt Date: 20070430
  Transmission Date: 20071010
  Serious: Yes (Death, Hospitalization, Other)
  Sender: FDA-Public Use
  Company Number: US-PFIZER INC-2007035252

PATIENT
  Sex: Male

DRUGS (1)
  1. FELDENE [Suspect]
     Indication: ARTHRALGIA
     Dates: start: 20030511, end: 20060201

REACTIONS (4)
  - CONVULSION [None]
  - HEPATIC FAILURE [None]
  - PEPTIC ULCER HAEMORRHAGE [None]
  - SEPSIS [None]
